FAERS Safety Report 6545053-X (Version None)
Quarter: 2010Q1

REPORT INFORMATION
  Report Type: 
  Country: None (occurrence: None)
  Receive Date: 20100121
  Receipt Date: 20100115
  Transmission Date: 20100710
  Serious: Yes (Other)
  Sender: FDA-Public Use
  Company Number: B0627424A

PATIENT
  Age: 46 Year
  Sex: Female

DRUGS (2)
  1. SERETIDE [Suspect]
     Indication: ASTHMA
     Route: 055
     Dates: end: 20091201
  2. AVAMYS [Suspect]
     Indication: RHINITIS
     Route: 055
     Dates: start: 20091001, end: 20091201

REACTIONS (2)
  - ANOSMIA [None]
  - DYSGEUSIA [None]
